FAERS Safety Report 5945933-X (Version None)
Quarter: 2008Q4

REPORT INFORMATION
  Report Type: 
  Country: None (occurrence: None)
  Receive Date: 20081106
  Receipt Date: 20081103
  Transmission Date: 20090506
  Serious: Yes (Other)
  Sender: FDA-Public Use
  Company Number: PTA2008000016

PATIENT
  Sex: Male

DRUGS (1)
  1. FLUDARABINE PHOSPHATE [Suspect]
     Dosage: INTRAVENOUS
     Route: 042

REACTIONS (1)
  - LONG QT SYNDROME [None]
